FAERS Safety Report 13791758 (Version 9)
Quarter: 2019Q2

REPORT INFORMATION
  Report Type: Report from Study
  Country: US (occurrence: US)
  Receive Date: 20170725
  Receipt Date: 20190408
  Transmission Date: 20190711
  Serious: Yes (Hospitalization, Other)
  Sender: FDA-Public Use
  Company Number: US-ACTELION-A-US2016-140125

PATIENT
  Sex: Female
  Weight: 81.63 kg

DRUGS (5)
  1. ADCIRCA [Concomitant]
     Active Substance: TADALAFIL
  2. TRACLEER [Suspect]
     Active Substance: BOSENTAN
     Dosage: 125 MG, BID
     Route: 048
  3. XARELTO [Concomitant]
     Active Substance: RIVAROXABAN
  4. TRACLEER [Suspect]
     Active Substance: BOSENTAN
     Indication: PULMONARY ARTERIAL HYPERTENSION
     Dosage: 125 MG, BID
     Route: 048
     Dates: start: 20150504
  5. TYVASO [Concomitant]
     Active Substance: TREPROSTINIL

REACTIONS (22)
  - Cardiac arrest [Recovered/Resolved]
  - Pulmonary hypertension [Unknown]
  - Tremor [Unknown]
  - Resuscitation [Recovered/Resolved]
  - Antidepressant therapy [Unknown]
  - Diarrhoea [Unknown]
  - Intervertebral disc protrusion [Unknown]
  - Terminal state [Unknown]
  - Fall [Unknown]
  - Intestinal polypectomy [Unknown]
  - Oxygen saturation decreased [Unknown]
  - Chest pain [Unknown]
  - Vomiting [Unknown]
  - Intestinal mass [Unknown]
  - Dehydration [Unknown]
  - Loss of consciousness [Unknown]
  - Heat stroke [Unknown]
  - Sciatica [Unknown]
  - Seizure [Unknown]
  - Biopsy small intestine [Unknown]
  - Dyspnoea [Unknown]
  - Head injury [Unknown]
